FAERS Safety Report 6948445-X (Version None)
Quarter: 2010Q3

REPORT INFORMATION
  Report Type: 
  Country: None (occurrence: None)
  Receive Date: 20100828
  Receipt Date: 20091030
  Transmission Date: 20110219
  Serious: No
  Sender: FDA-Public Use
  Company Number: US-ABBOTT-09P-163-0606558-00

PATIENT
  Age: 73 Year
  Sex: Female
  Weight: 56.296 kg

DRUGS (6)
  1. NIASPAN [Suspect]
     Indication: LOW DENSITY LIPOPROTEIN INCREASED
     Dates: start: 20090923, end: 20091027
  2. NIASPAN [Suspect]
     Dates: start: 20091029
  3. LIBRAX [Concomitant]
     Indication: IRRITABLE BOWEL SYNDROME
     Dosage: UNKNOWN
     Route: 048
  4. ASPIRIN [Concomitant]
     Indication: PRODUCT USED FOR UNKNOWN INDICATION
     Dates: start: 20090924, end: 20091023
  5. ASPIRIN [Concomitant]
     Dates: start: 20091029
  6. FISH OIL [Concomitant]
     Indication: MEDICAL DIET
     Dates: start: 20090923

REACTIONS (3)
  - FLUSHING [None]
  - PARAESTHESIA [None]
  - PRURITUS [None]
